FAERS Safety Report 8812473 (Version 1)
Quarter: 2012Q4

REPORT INFORMATION
  Report Type: 
  Country: PH (occurrence: PH)
  Receive Date: 20120927
  Receipt Date: 20120927
  Transmission Date: 20130627
  Serious: Yes (Death, Other)
  Sender: FDA-Public Use
  Company Number: PHHY2008PH18620

PATIENT
  Sex: Male

DRUGS (4)
  1. GLIVEC [Suspect]
     Indication: CHRONIC MYELOID LEUKAEMIA
     Dates: start: 20080513
  2. GLIVEC [Suspect]
     Dosage: 400 mg, per day
     Route: 048
     Dates: start: 20080530
  3. ALLOPURINOL [Concomitant]
     Dosage: 300 mg, per day
  4. VITAMIN B COMPLEX [Concomitant]

REACTIONS (3)
  - Chronic obstructive pulmonary disease [Fatal]
  - Lung disorder [Fatal]
  - Pneumonia [Unknown]
